FAERS Safety Report 21445878 (Version 1)
Quarter: 2022Q4

REPORT INFORMATION
  Report Type: Spontaneous
  Country: GR (occurrence: GR)
  Receive Date: 20221012
  Receipt Date: 20221012
  Transmission Date: 20230112
  Serious: Yes (Other)
  Sender: FDA-Public Use
  Company Number: GR-SA-SAC20210907000740

PATIENT
  Age: 46 Year
  Sex: Male

DRUGS (4)
  1. TAMSULOSIN HYDROCHLORIDE [Interacting]
     Active Substance: TAMSULOSIN HYDROCHLORIDE
     Indication: Prostatitis
     Dosage: 0.4 MG, QD
     Route: 048
     Dates: start: 20210726
  2. TADALAFIL [Interacting]
     Active Substance: TADALAFIL
     Indication: Prostatitis
     Dosage: 5 MG, QD
     Route: 048
     Dates: start: 20210730, end: 20210804
  3. TABRIN [OFLOXACIN] [Concomitant]
     Indication: Prostatitis
     Dosage: 200 MG, BID
     Route: 048
     Dates: start: 20210726
  4. FLAGYL [Concomitant]
     Active Substance: METRONIDAZOLE\METRONIDAZOLE HYDROCHLORIDE
     Indication: Prostatitis
     Dosage: 500 MG, TID
     Route: 048
     Dates: start: 20210726

REACTIONS (5)
  - Heart rate increased [Recovered/Resolved]
  - Palpitations [Recovered/Resolved]
  - Drug interaction [Recovered/Resolved]
  - Nasal congestion [Recovered/Resolved]
  - Off label use [Unknown]

NARRATIVE: CASE EVENT DATE: 20210101
